FAERS Safety Report 20902677 (Version 4)
Quarter: 2022Q2

REPORT INFORMATION
  Report Type: Report from Study
  Country: US (occurrence: US)
  Receive Date: 20220601
  Receipt Date: 20220622
  Transmission Date: 20220721
  Serious: No
  Sender: FDA-Public Use
  Company Number: US-NOVARTISTESTPH-NVSC2022US126136

PATIENT
  Sex: Male

DRUGS (1)
  1. TASIGNA [Suspect]
     Active Substance: NILOTINIB
     Indication: Product used for unknown indication
     Dosage: UNK
     Route: 048
     Dates: start: 20220316

REACTIONS (4)
  - Neuralgia [Recovered/Resolved]
  - Diarrhoea [Unknown]
  - Labelled drug-food interaction medication error [Unknown]
  - Fatigue [Unknown]
